FAERS Safety Report 5112774-5 (Version None)
Quarter: 2006Q3

REPORT INFORMATION
  Report Type: 
  Country: None (occurrence: None)
  Receive Date: 20060922
  Receipt Date: 20060914
  Transmission Date: 20061208
  Serious: Yes (Hospitalization)
  Sender: FDA-Public Use
  Company Number: KR-AVENTIS-200619598GDDC

PATIENT

DRUGS (1)
  1. TAXOTERE [Suspect]
     Route: 042

REACTIONS (1)
  - PANCREATITIS [None]
